FAERS Safety Report 9641790 (Version 1)
Quarter: 2013Q4

REPORT INFORMATION
  Report Type: Spontaneous
  Country: TN (occurrence: TN)
  Receive Date: 20131023
  Receipt Date: 20131023
  Transmission Date: 20140711
  Serious: Yes (Other)
  Sender: FDA-Public Use
  Company Number: TN-UCBSA-100933

PATIENT
  Age: 24 Month
  Sex: Female

DRUGS (2)
  1. KEPPRA [Suspect]
     Indication: PARTIAL SEIZURES
     Route: 048
  2. KEPPRA [Suspect]
     Indication: PARTIAL SEIZURES
     Route: 048

REACTIONS (1)
  - Oedema peripheral [Recovered/Resolved]
